FAERS Safety Report 13829343 (Version 17)
Quarter: 2019Q2

REPORT INFORMATION
  Report Type: Spontaneous
  Country: CA (occurrence: CA)
  Receive Date: 20170803
  Receipt Date: 20190426
  Transmission Date: 20190711
  Serious: Yes (Hospitalization, Other)
  Sender: FDA-Public Use
  Company Number: CA-PFIZER INC-2017332360

PATIENT
  Age: 49 Year
  Sex: Female

DRUGS (38)
  1. PANTOPRAZOLE [Suspect]
     Active Substance: PANTOPRAZOLE
     Dosage: 1 DF, 2X/DAY
     Route: 048
     Dates: start: 20150901
  2. FENTANYL CITRATE. [Suspect]
     Active Substance: FENTANYL CITRATE
     Dosage: UNK
     Route: 065
  3. XOLAIR [Suspect]
     Active Substance: OMALIZUMAB
     Dosage: 300 MG, MONTHLY (EVERY FOUR WEEKS)
     Route: 058
     Dates: start: 20161220
  4. PANTOPRAZOLE SODIUM ANHYDROUS [Suspect]
     Active Substance: PANTOPRAZOLE SODIUM ANHYDROUS
     Dosage: 1 DF, 2X/DAY
     Route: 048
  5. OMALIZUMAB. [Suspect]
     Active Substance: OMALIZUMAB
     Indication: CHRONIC SPONTANEOUS URTICARIA
     Dosage: 300 MG, MONTHLY
     Route: 058
  6. BENADRYL [Concomitant]
     Active Substance: DIPHENHYDRAMINE HYDROCHLORIDE
     Dosage: 5 MG, 2X/DAY
     Route: 065
  7. HYDROCORTISONE. [Suspect]
     Active Substance: HYDROCORTISONE
     Dosage: UNK, UNK
     Route: 065
  8. XOLAIR [Suspect]
     Active Substance: OMALIZUMAB
     Dosage: UNK
     Route: 058
     Dates: start: 20170116
  9. BENADRYL [Concomitant]
     Active Substance: DIPHENHYDRAMINE HYDROCHLORIDE
     Dosage: 5 MG, 2X/DAY
     Route: 065
  10. KETOTIFEN FUMARATE. [Concomitant]
     Active Substance: KETOTIFEN FUMARATE
     Dosage: UNK DOSE, MG UNITS, QD
  11. KETOTIFEN FUMARATE. [Concomitant]
     Active Substance: KETOTIFEN FUMARATE
     Dosage: UNK, 4X/DAY
     Route: 048
  12. DEXAMETHASONE. [Concomitant]
     Active Substance: DEXAMETHASONE
     Dosage: 5 MG, 2X/DAY
     Route: 065
  13. XOLAIR [Suspect]
     Active Substance: OMALIZUMAB
     Dosage: 300 MG, UNK
     Route: 058
     Dates: start: 20170316
  14. PREGABALIN. [Concomitant]
     Active Substance: PREGABALIN
     Dosage: 75 MG, 2X/DAY
     Route: 065
  15. HYDROCORTISONE. [Suspect]
     Active Substance: HYDROCORTISONE
     Dosage: 50 MG, UNK
     Route: 065
  16. XOLAIR [Suspect]
     Active Substance: OMALIZUMAB
     Dosage: 300 MG, UNK
     Route: 058
  17. PREGABALIN. [Concomitant]
     Active Substance: PREGABALIN
     Dosage: 1 DF, 2X/DAY
     Route: 048
  18. SINGULAIR [Concomitant]
     Active Substance: MONTELUKAST SODIUM
     Dosage: UNK
     Route: 065
  19. HYDRALAZINE HYDROCHLORIDE. [Concomitant]
     Active Substance: HYDRALAZINE HYDROCHLORIDE
     Dosage: 50 MG, 1X/DAY
     Route: 048
  20. XOLAIR [Suspect]
     Active Substance: OMALIZUMAB
     Indication: CHRONIC SPONTANEOUS URTICARIA
     Dosage: 300 MILLIGRAM, Q4WEEKS
     Route: 058
     Dates: start: 20161121
  21. NALCROM [Suspect]
     Active Substance: CROMOLYN SODIUM
     Dosage: 4 DF, 4X/DAY
     Route: 065
  22. ZANTAC [Suspect]
     Active Substance: RANITIDINE HYDROCHLORIDE
     Dosage: 150 MG, 2X/DAY
     Route: 048
     Dates: start: 20150901
  23. BENADRYL [Concomitant]
     Active Substance: DIPHENHYDRAMINE HYDROCHLORIDE
     Dosage: UNK UNK, 2X/DAY
     Route: 065
  24. KETOTIFEN FUMARATE. [Concomitant]
     Active Substance: KETOTIFEN FUMARATE
     Dosage: 2 MG, UNK
     Route: 065
  25. OXYCODONE HYDROCHLORIDE. [Concomitant]
     Active Substance: OXYCODONE HYDROCHLORIDE
     Dosage: UNK
     Route: 065
  26. NALCROM [Concomitant]
     Active Substance: CROMOLYN SODIUM
     Dosage: UNK UNK, 4X/DAY
     Route: 065
  27. HYDROCORTISONE. [Suspect]
     Active Substance: HYDROCORTISONE
     Dosage: 50.0 MICROGRAM
     Route: 065
  28. XOLAIR [Suspect]
     Active Substance: OMALIZUMAB
     Dosage: UNK
     Route: 058
     Dates: start: 20170412
  29. HYDROXYZINE EMBONATE [Concomitant]
     Active Substance: HYDROXYZINE PAMOATE
     Dosage: UNK, 4X/DAY
     Route: 048
  30. PREGABALIN. [Concomitant]
     Active Substance: PREGABALIN
     Dosage: 75 MG, UNK
     Route: 048
  31. HYDROCORTISONE. [Suspect]
     Active Substance: HYDROCORTISONE
     Dosage: 50 MG, UNK
     Route: 065
     Dates: start: 20161219
  32. ZANTAC [Suspect]
     Active Substance: RANITIDINE HYDROCHLORIDE
     Dosage: 150 MG, UNK
     Route: 048
  33. BENADRYL [Concomitant]
     Active Substance: DIPHENHYDRAMINE HYDROCHLORIDE
     Dosage: 50 MG, 2X/DAY
     Route: 065
  34. HYDROXYZINE EMBONATE [Concomitant]
     Active Substance: HYDROXYZINE PAMOATE
     Dosage: 50 MG, 4X/DAY
     Route: 048
  35. KETOTIFEN FUMARATE. [Concomitant]
     Active Substance: KETOTIFEN FUMARATE
     Dosage: UNK
     Route: 065
  36. REACTINE /00884302/ [Concomitant]
     Active Substance: CETIRIZINE HYDROCHLORIDE
     Dosage: 20 MG, 2X/DAY
     Route: 048
  37. PANTOPRAZOLE [Suspect]
     Active Substance: PANTOPRAZOLE
     Dosage: 75 MG, 1X/DAY
     Route: 048
  38. REACTINE /00884302/ [Concomitant]
     Active Substance: CETIRIZINE HYDROCHLORIDE
     Dosage: 1 DF, 2X/DAY
     Route: 065

REACTIONS (17)
  - Osteoporosis [Not Recovered/Not Resolved]
  - Pruritus [Not Recovered/Not Resolved]
  - Back pain [Not Recovered/Not Resolved]
  - Injection site pruritus [Not Recovered/Not Resolved]
  - Scratch [Not Recovered/Not Resolved]
  - Urticaria [Not Recovered/Not Resolved]
  - Drug ineffective [Not Recovered/Not Resolved]
  - Perfume sensitivity [Not Recovered/Not Resolved]
  - Skin reaction [Not Recovered/Not Resolved]
  - Bone pain [Not Recovered/Not Resolved]
  - Blood glucose increased [Not Recovered/Not Resolved]
  - Feeling abnormal [Not Recovered/Not Resolved]
  - Asthenia [Not Recovered/Not Resolved]
  - Blood pressure increased [Not Recovered/Not Resolved]
  - Mastocytosis [Not Recovered/Not Resolved]
  - Gait disturbance [Not Recovered/Not Resolved]
  - Hypersensitivity [Not Recovered/Not Resolved]
